FAERS Safety Report 12557126 (Version 2)
Quarter: 2016Q3

REPORT INFORMATION
  Report Type: Spontaneous
  Country: US (occurrence: US)
  Receive Date: 20160714
  Receipt Date: 20160901
  Transmission Date: 20161109
  Serious: No
  Sender: FDA-Public Use
  Company Number: US-009507513-1607USA004216

PATIENT
  Age: 25 Year
  Sex: Female
  Weight: 116.55 kg

DRUGS (2)
  1. RAGWITEK [Suspect]
     Active Substance: AMBROSIA ARTEMISIIFOLIA POLLEN
     Indication: SEASONAL ALLERGY
     Dosage: UNK
     Route: 048
     Dates: start: 20160609, end: 20160616
  2. RAGWITEK [Suspect]
     Active Substance: AMBROSIA ARTEMISIIFOLIA POLLEN
     Dosage: 12 DF (REPORTED AS ^AMB^), QD
     Route: 048
     Dates: start: 20160621, end: 20160624

REACTIONS (9)
  - Glossodynia [Unknown]
  - Swollen tongue [Unknown]
  - Stomatitis [Unknown]
  - Glossodynia [Recovered/Resolved]
  - Tongue ulceration [Recovered/Resolved]
  - Dental caries [Unknown]
  - Swollen tongue [Recovered/Resolved]
  - Dental caries [Not Recovered/Not Resolved]
  - Tongue ulceration [Unknown]

NARRATIVE: CASE EVENT DATE: 201606
